FAERS Safety Report 14752319 (Version 1)
Quarter: 2018Q2

REPORT INFORMATION
  Report Type: Spontaneous
  Country: TR (occurrence: TR)
  Receive Date: 20180412
  Receipt Date: 20180412
  Transmission Date: 20180711
  Serious: Yes (Other)
  Sender: FDA-Public Use
  Company Number: TR-SA-2018SA104179

PATIENT
  Age: 50 Year
  Sex: Female

DRUGS (3)
  1. BASILIXIMAB [Suspect]
     Active Substance: BASILIXIMAB
     Route: 065
  2. PREDNISONE. [Suspect]
     Active Substance: PREDNISONE
     Route: 041
  3. ANTI-THYMOCYTE GLOBULIN (RABBIT) NOS [Suspect]
     Active Substance: LAPINE T-LYMPHOCYTE IMMUNE GLOBULIN
     Route: 041

REACTIONS (2)
  - Pseudomonas infection [Recovered/Resolved]
  - Pulmonary cavitation [Recovered/Resolved]
